FAERS Safety Report 4366761-5 (Version None)
Quarter: 2004Q2

REPORT INFORMATION
  Report Type: 
  Country: None (occurrence: None)
  Receive Date: 20040528
  Receipt Date: 20040520
  Transmission Date: 20050107
  Serious: Yes (Other)
  Sender: FDA-Public Use
  Company Number: PHBS2004BR06639

PATIENT
  Age: 7 Year
  Sex: Male

DRUGS (1)
  1. RITALINA [Suspect]
     Indication: PSYCHOMOTOR HYPERACTIVITY
     Dosage: 1 TABLET/D
     Route: 048
     Dates: start: 20040401

REACTIONS (1)
  - PARALYSIS [None]
